FAERS Safety Report 13491806 (Version 5)
Quarter: 2017Q3

REPORT INFORMATION
  Report Type: Spontaneous
  Country: US (occurrence: US)
  Receive Date: 20170427
  Receipt Date: 20170914
  Transmission Date: 20171127
  Serious: Yes (Congenital Anomaly, Other)
  Sender: FDA-Public Use
  Company Number: PHEH2017US012062

PATIENT
  Sex: Female

DRUGS (2)
  1. ONDANSETRON [Suspect]
     Active Substance: ONDANSETRON
     Indication: FOETAL EXPOSURE DURING PREGNANCY
     Dosage: MOTHER DOSE: 04 MG, TID
     Route: 064
  2. ZOFRAN [Suspect]
     Active Substance: ONDANSETRON HYDROCHLORIDE
     Indication: FOETAL EXPOSURE DURING PREGNANCY
     Route: 064

REACTIONS (15)
  - Pneumonia [Unknown]
  - Foetal exposure during pregnancy [Unknown]
  - Conjunctivitis [Unknown]
  - Sneezing [Unknown]
  - Upper respiratory tract infection [Unknown]
  - Left-to-right cardiac shunt [Unknown]
  - Bronchitis [Unknown]
  - Arthritis [Unknown]
  - Viral pharyngitis [Unknown]
  - Limb injury [Unknown]
  - Cough [Unknown]
  - Pyrexia [Unknown]
  - Pharyngeal erythema [Unknown]
  - Arthralgia [Unknown]
  - Ventricular septal defect [Unknown]
